FAERS Safety Report 8037893-5 (Version None)
Quarter: 2012Q1

REPORT INFORMATION
  Report Type: 
  Country: None (occurrence: None)
  Receive Date: 20120105
  Receipt Date: 20111228
  Transmission Date: 20120608
  Serious: Yes (Hospitalization, Other)
  Sender: FDA-Public Use
  Company Number: 2011SP012497

PATIENT
  Age: 26 Year
  Sex: Female
  Weight: 80.7403 kg

DRUGS (1)
  1. NUVARING [Suspect]
     Indication: CONTRACEPTION
     Dosage: 1 DF, QM
     Dates: end: 20090403

REACTIONS (22)
  - TRICUSPID VALVE INCOMPETENCE [None]
  - PELVIC PAIN [None]
  - MENSTRUATION IRREGULAR [None]
  - PULMONARY EMBOLISM [None]
  - FATIGUE [None]
  - VAGINITIS BACTERIAL [None]
  - ANAEMIA [None]
  - MENTAL DISORDER [None]
  - OEDEMA PERIPHERAL [None]
  - UPPER RESPIRATORY TRACT INFECTION [None]
  - ARRHYTHMIA [None]
  - MICTURITION URGENCY [None]
  - URINARY RETENTION [None]
  - PLEURISY [None]
  - EMOTIONAL DISORDER [None]
  - INFLAMMATION [None]
  - MUSCLE SPASMS [None]
  - DEEP VEIN THROMBOSIS [None]
  - HUMAN PAPILLOMA VIRUS TEST POSITIVE [None]
  - PNEUMONIA [None]
  - SMEAR CERVIX ABNORMAL [None]
  - INFARCTION [None]
